FAERS Safety Report 15765127 (Version 2)
Quarter: 2019Q1

REPORT INFORMATION
  Report Type: Spontaneous
  Country: US (occurrence: US)
  Receive Date: 20181227
  Receipt Date: 20190102
  Transmission Date: 20190417
  Serious: Yes (Hospitalization)
  Sender: FDA-Public Use
  Company Number: US-PIRAMAL ENTERPRISES LIMITED-2018-PEL-003520

PATIENT

DRUGS (1)
  1. GABLOFEN [Suspect]
     Active Substance: BACLOFEN
     Indication: MUSCLE SPASTICITY
     Dosage: 256 MICROGRAM, QD (2100 MCG/ML)
     Route: 037

REACTIONS (2)
  - Infection [Recovered/Resolved]
  - Implant site extravasation [Recovered/Resolved]
